FAERS Safety Report 23345775 (Version 1)
Quarter: 2023Q4

REPORT INFORMATION
  Report Type: Spontaneous
  Country: US (occurrence: None)
  Receive Date: 20231227
  Receipt Date: 20231227
  Transmission Date: 20240109
  Serious: Yes (Hospitalization)
  Sender: FDA-Public Use
  Company Number: None

PATIENT
  Sex: Male

DRUGS (2)
  1. ADVATE [Suspect]
     Active Substance: ANTIHEMOPHILIC FACTOR, HUMAN RECOMBINANT
     Indication: Factor VIII deficiency
     Dosage: 4500 UNITS PRN IV?
     Route: 042
     Dates: start: 202311
  2. HEMLIBRA SDV [Concomitant]

REACTIONS (3)
  - Haemorrhage [None]
  - Seizure [None]
  - Fall [None]
